FAERS Safety Report 10094712 (Version 1)
Quarter: 2014Q2

REPORT INFORMATION
  Report Type: Spontaneous
  Country: US (occurrence: None)
  Receive Date: 20140421
  Receipt Date: 20140421
  Transmission Date: 20141212
  Serious: Yes (Hospitalization)
  Sender: FDA-Public Use
  Company Number: None

PATIENT
  Age: 76 Year
  Sex: Male
  Weight: 84.5 kg

DRUGS (15)
  1. EVEROLIMUS [Suspect]
     Dates: start: 20130321
  2. AMOXICILLIN [Concomitant]
  3. ASPIRIN [Concomitant]
  4. AVODART [Concomitant]
  5. COMPAZINE [Concomitant]
  6. DILAUDID [Concomitant]
  7. EVEROLIMUS [Concomitant]
  8. GABAPENTIN [Concomitant]
  9. LEXAPRO [Concomitant]
  10. LIPITOER [Concomitant]
  11. OMEPRAZOLE [Concomitant]
  12. PLAVIX [Concomitant]
  13. TAMSULOSIN [Concomitant]
  14. ZOFRAN [Concomitant]
  15. ZUPLENZ [Concomitant]

REACTIONS (8)
  - Orthostatic hypotension [None]
  - Fatigue [None]
  - Renal failure acute [None]
  - Nausea [None]
  - Asthenia [None]
  - Dyspnoea [None]
  - Syncope [None]
  - Hypophagia [None]
